FAERS Safety Report 14183094 (Version 4)
Quarter: 2019Q1

REPORT INFORMATION
  Report Type: Report from Study
  Country: BR (occurrence: BR)
  Receive Date: 20171113
  Receipt Date: 20190212
  Transmission Date: 20190417
  Serious: Yes (Hospitalization, Other)
  Sender: FDA-Public Use
  Company Number: BR-JNJFOC-20171110544

PATIENT
  Age: 72 Year
  Sex: Female

DRUGS (2)
  1. STELARA [Suspect]
     Active Substance: USTEKINUMAB
     Indication: PSORIASIS
     Route: 058
     Dates: start: 2016, end: 201805
  2. FLUOXETINE [Concomitant]
     Active Substance: FLUOXETINE HYDROCHLORIDE
     Route: 065

REACTIONS (8)
  - Psoriasis [Not Recovered/Not Resolved]
  - Knee operation [Unknown]
  - Infection [Unknown]
  - Decreased immune responsiveness [Unknown]
  - Pneumonia [Unknown]
  - Post procedural infection [Recovered/Resolved]
  - Knee arthroplasty [Not Recovered/Not Resolved]
  - Joint injection [Unknown]

NARRATIVE: CASE EVENT DATE: 201706
